FAERS Safety Report 4646223-8 (Version None)
Quarter: 2005Q2

REPORT INFORMATION
  Report Type: 
  Country: None (occurrence: None)
  Receive Date: 20050422
  Receipt Date: 20050422
  Transmission Date: 20051028
  Serious: No
  Sender: FDA-Public Use
  Company Number: None

PATIENT
  Sex: Male
  Weight: 81.3 kg

DRUGS (4)
  1. DAUNORUBICIN [Suspect]
     Indication: MYELODYSPLASTIC SYNDROME
     Dosage: 45 MG/M2/DAY, DAYS 1-3, IV
     Route: 042
     Dates: start: 20050122
  2. CYTARABINE [Suspect]
     Dosage: 100 MG/M2/DAY, DAYS 1-7, IV
     Route: 042
  3. ZOSUQUIDAR TRIHYDROCHLORIDE [Suspect]
     Dosage: 550 MG/DAYS, DAYS 1-3, IV
     Route: 042
  4. NEUPOGEN [Suspect]
     Dosage: UNTIL ANC }/=500 CELLS FOR 3 CONSEVCUTIVES DAYS.

REACTIONS (4)
  - ABDOMINAL PAIN [None]
  - FEBRILE NEUTROPENIA [None]
  - NEUTROPENIA [None]
  - ORTHOSTATIC HYPOTENSION [None]
